FAERS Safety Report 25083844 (Version 1)
Quarter: 2025Q1

REPORT INFORMATION
  Report Type: Spontaneous
  Country: US (occurrence: US)
  Receive Date: 20250317
  Receipt Date: 20250317
  Transmission Date: 20250409
  Serious: No
  Sender: SANOFI AVENTIS
  Company Number: US-SA-2025SA076213

PATIENT
  Age: 14 Year
  Sex: Female

DRUGS (3)
  1. DUPIXENT [Suspect]
     Active Substance: DUPILUMAB
     Indication: Dermatitis atopic
     Dosage: 300 MG, QOW
     Route: 058
  2. AVEENO ACTIVE NATURALS ECZEMA THERAPY [Concomitant]
     Indication: Dry skin
  3. CLOBETASOL [Concomitant]
     Active Substance: CLOBETASOL
     Indication: Dry skin

REACTIONS (1)
  - Therapeutic product effect incomplete [Unknown]
